FAERS Safety Report 8043046-7 (Version None)
Quarter: 2012Q1

REPORT INFORMATION
  Report Type: 
  Country: None (occurrence: None)
  Receive Date: 20120112
  Receipt Date: 20120105
  Transmission Date: 20120608
  Serious: Yes (Hospitalization)
  Sender: FDA-Public Use
  Company Number: PHEH2012US000682

PATIENT
  Sex: Female

DRUGS (1)
  1. GLEEVEC [Suspect]
     Indication: CHRONIC MYELOID LEUKAEMIA
     Dosage: 100 MG, BID
     Route: 048

REACTIONS (7)
  - PNEUMONIA [None]
  - BLOOD IRON DECREASED [None]
  - HEPATITIS A [None]
  - SYNCOPE [None]
  - CANDIDIASIS [None]
  - ANAEMIA [None]
  - THROAT IRRITATION [None]
